FAERS Safety Report 21014693 (Version 1)
Quarter: 2022Q2

REPORT INFORMATION
  Report Type: Spontaneous
  Country: US (occurrence: US)
  Receive Date: 20220628
  Receipt Date: 20220628
  Transmission Date: 20220721
  Serious: Yes (Other)
  Sender: FDA-Public Use
  Company Number: US-JNJFOC-20220650156

PATIENT
  Age: 58 Year
  Sex: Male

DRUGS (6)
  1. TYLENOL [Suspect]
     Active Substance: ACETAMINOPHEN
     Indication: Pain
     Route: 065
     Dates: end: 20220513
  2. VEKLURY [Suspect]
     Active Substance: REMDESIVIR
     Indication: Severe acute respiratory syndrome
     Dosage: ONCE
     Route: 042
     Dates: start: 20220510, end: 20220510
  3. VEKLURY [Suspect]
     Active Substance: REMDESIVIR
     Route: 042
     Dates: start: 20220511, end: 20220513
  4. ALLOPURINOL [Suspect]
     Active Substance: ALLOPURINOL
     Indication: Gout
     Route: 065
     Dates: end: 20220513
  5. NIACIN [Suspect]
     Active Substance: NIACIN
     Indication: Blood cholesterol increased
     Route: 065
     Dates: end: 20220513
  6. ATORVASTATIN [Suspect]
     Active Substance: ATORVASTATIN
     Indication: Blood cholesterol increased
     Route: 065
     Dates: end: 20220513

REACTIONS (1)
  - Liver function test increased [Recovering/Resolving]

NARRATIVE: CASE EVENT DATE: 20220513
